FAERS Safety Report 25047033 (Version 1)
Quarter: 2025Q1

REPORT INFORMATION
  Report Type: Spontaneous
  Country: IT (occurrence: IT)
  Receive Date: 20250306
  Receipt Date: 20250306
  Transmission Date: 20250409
  Serious: Yes (Hospitalization, Other)
  Sender: PFIZER
  Company Number: IT-UCBSA-2025010093

PATIENT
  Age: 4 Year
  Sex: Female

DRUGS (8)
  1. LEVETIRACETAM [Suspect]
     Active Substance: LEVETIRACETAM
     Indication: Seizure
  2. LACOSAMIDE [Suspect]
     Active Substance: LACOSAMIDE
     Indication: Seizure
  3. VIGABATRIN [Concomitant]
     Active Substance: VIGABATRIN
  4. VALPROIC ACID [Concomitant]
     Active Substance: VALPROIC ACID
  5. ETHOSUXIMIDE [Concomitant]
     Active Substance: ETHOSUXIMIDE
  6. CLONAZEPAM [Concomitant]
     Active Substance: CLONAZEPAM
  7. LAMOTRIGINE [Concomitant]
     Active Substance: LAMOTRIGINE
  8. CANNABIDIOL [Concomitant]
     Active Substance: CANNABIDIOL

REACTIONS (7)
  - Multiple-drug resistance [Unknown]
  - Seizure [Unknown]
  - Status epilepticus [Unknown]
  - Generalised tonic-clonic seizure [Unknown]
  - Atonic seizures [Unknown]
  - Gait disturbance [Unknown]
  - Abnormal behaviour [Unknown]
